FAERS Safety Report 5369684-8 (Version None)
Quarter: 2007Q2

REPORT INFORMATION
  Report Type: 
  Country: None (occurrence: None)
  Receive Date: 20070625
  Receipt Date: 20070614
  Transmission Date: 20071010
  Serious: Yes (Disabling, Other)
  Sender: FDA-Public Use
  Company Number: GB-PFIZER INC-2007049442

PATIENT
  Age: 61 Year
  Sex: Female
  Weight: 85 kg

DRUGS (4)
  1. CABASER [Suspect]
     Indication: PARKINSON'S DISEASE
     Route: 048
     Dates: start: 20010928, end: 20050901
  2. CARBIDOPA [Concomitant]
     Route: 048
  3. CO-CARELDOPA [Concomitant]
     Route: 048
  4. NARATRIPTAN [Concomitant]

REACTIONS (1)
  - PATHOLOGICAL GAMBLING [None]
